FAERS Safety Report 18883040 (Version 3)
Quarter: 2021Q3

REPORT INFORMATION
  Report Type: Spontaneous
  Country: US (occurrence: US)
  Receive Date: 20210211
  Receipt Date: 20210930
  Transmission Date: 20211014
  Serious: Yes (Hospitalization, Other)
  Sender: FDA-Public Use
  Company Number: US-ASTRAZENECA-2021A027482

PATIENT
  Age: 15341 Day
  Sex: Female

DRUGS (38)
  1. PROTONIX [Suspect]
     Active Substance: PANTOPRAZOLE SODIUM
     Indication: GASTROOESOPHAGEAL REFLUX DISEASE
     Dosage: GENERIC
     Route: 065
     Dates: end: 2017
  2. CIPROFLOXACIN. [Concomitant]
     Active Substance: CIPROFLOXACIN
     Route: 065
     Dates: start: 2016
  3. HYDROCODON [Concomitant]
     Active Substance: HYDROCODONE
  4. COREG [Concomitant]
     Active Substance: CARVEDILOL
  5. DOCUSATE [Concomitant]
     Active Substance: DOCUSATE
  6. PROTONIX [Suspect]
     Active Substance: PANTOPRAZOLE SODIUM
     Indication: GASTROOESOPHAGEAL REFLUX DISEASE
     Route: 065
     Dates: start: 2012, end: 2017
  7. AMLODIPINE [Concomitant]
     Active Substance: AMLODIPINE BESYLATE
  8. CIPRODEX [Concomitant]
     Active Substance: CIPROFLOXACIN HYDROCHLORIDE\DEXAMETHASONE
  9. NORVASC [Concomitant]
     Active Substance: AMLODIPINE BESYLATE
  10. NEXIUM [Suspect]
     Active Substance: ESOMEPRAZOLE MAGNESIUM
     Indication: GASTROOESOPHAGEAL REFLUX DISEASE
     Dosage: GENERIC
     Route: 065
     Dates: end: 2016
  11. DEXILANT [Suspect]
     Active Substance: DEXLANSOPRAZOLE
     Indication: GASTROOESOPHAGEAL REFLUX DISEASE
     Route: 065
     Dates: start: 2012, end: 2017
  12. MIRALAX [Concomitant]
     Active Substance: POLYETHYLENE GLYCOL 3350
  13. LABETALOL [Concomitant]
     Active Substance: LABETALOL\LABETALOL HYDROCHLORIDE
  14. LASIX [Concomitant]
     Active Substance: FUROSEMIDE
  15. LABETALOL [Concomitant]
     Active Substance: LABETALOL\LABETALOL HYDROCHLORIDE
  16. PRILOSEC [Suspect]
     Active Substance: OMEPRAZOLE MAGNESIUM
     Indication: GASTROOESOPHAGEAL REFLUX DISEASE
     Route: 048
     Dates: start: 2012, end: 2017
  17. PRILOSEC OTC [Suspect]
     Active Substance: OMEPRAZOLE MAGNESIUM
     Indication: GASTROOESOPHAGEAL REFLUX DISEASE
     Route: 048
     Dates: start: 2012, end: 2017
  18. LISINOPRIL. [Concomitant]
     Active Substance: LISINOPRIL
     Indication: BLOOD PRESSURE MEASUREMENT
     Route: 065
     Dates: start: 2017
  19. ZOSYN [Concomitant]
     Active Substance: PIPERACILLIN SODIUM\TAZOBACTAM SODIUM
  20. CARMEX [Concomitant]
     Active Substance: CAMPHOR\MENTHOL\PHENOL\POTASSIUM ALUM\SALICYLIC ACID
  21. ACETAMINOPHEN. [Concomitant]
     Active Substance: ACETAMINOPHEN
  22. METOCLOPRAMIDE. [Concomitant]
     Active Substance: METOCLOPRAMIDE
  23. MORPHINE [Concomitant]
     Active Substance: MORPHINE
  24. ATORVASTATIN [Concomitant]
     Active Substance: ATORVASTATIN
  25. IBUPROFEN. [Concomitant]
     Active Substance: IBUPROFEN
  26. TYLENOL [Concomitant]
     Active Substance: ACETAMINOPHEN
  27. MINOXIDIL. [Concomitant]
     Active Substance: MINOXIDIL
  28. MAGNESIUM SULFATE. [Concomitant]
     Active Substance: MAGNESIUM SULFATE
  29. NEXIUM [Suspect]
     Active Substance: ESOMEPRAZOLE MAGNESIUM
     Indication: GASTROOESOPHAGEAL REFLUX DISEASE
     Route: 048
     Dates: start: 2012, end: 2017
  30. PRILOSEC [Suspect]
     Active Substance: OMEPRAZOLE MAGNESIUM
     Indication: GASTROOESOPHAGEAL REFLUX DISEASE
     Dosage: GENERIC
     Route: 065
     Dates: end: 2017
  31. LANTUS [Concomitant]
     Active Substance: INSULIN GLARGINE
  32. REGLAN [Concomitant]
     Active Substance: METOCLOPRAMIDE HYDROCHLORIDE
  33. HYDRALAZINE [Concomitant]
     Active Substance: HYDRALAZINE HYDROCHLORIDE
  34. HEPARIN [Concomitant]
     Active Substance: HEPARIN SODIUM
  35. SODIUM CHLORIDE. [Concomitant]
     Active Substance: SODIUM CHLORIDE
  36. FLONASE [Concomitant]
     Active Substance: FLUTICASONE PROPIONATE
  37. POTASSIUM CHLORIDE. [Concomitant]
     Active Substance: POTASSIUM CHLORIDE
  38. COMPAZINE [Concomitant]
     Active Substance: PROCHLORPERAZINE MALEATE

REACTIONS (4)
  - Acute kidney injury [Not Recovered/Not Resolved]
  - End stage renal disease [Unknown]
  - Chronic kidney disease [Not Recovered/Not Resolved]
  - Nephrogenic anaemia [Unknown]

NARRATIVE: CASE EVENT DATE: 20150211
